FAERS Safety Report 4556370-7 (Version None)
Quarter: 2005Q1

REPORT INFORMATION
  Report Type: 
  Country: None (occurrence: None)
  Receive Date: 20050103
  Receipt Date: 20040809
  Transmission Date: 20050727
  Serious: Yes (Other)
  Sender: FDA-Public Use
  Company Number: 2004UW17357

PATIENT
  Age: 83 Year
  Sex: Male

DRUGS (2)
  1. CRESTOR [Suspect]
     Dosage: 10 MG PO
     Route: 048
     Dates: start: 20040614, end: 20040701
  2. CRESTOR [Suspect]
     Dosage: 5 MG QOD PO
     Route: 048
     Dates: start: 20040701

REACTIONS (1)
  - HIGH DENSITY LIPOPROTEIN DECREASED [None]
